FAERS Safety Report 26213467 (Version 1)
Quarter: 2025Q4

REPORT INFORMATION
  Report Type: Spontaneous
  Country: EU (occurrence: EU)
  Receive Date: 20251230
  Receipt Date: 20251230
  Transmission Date: 20260117
  Serious: Yes (Other)
  Sender: MERCK SHARP & DOHME LLC
  Company Number: EU-009507513-2364071

PATIENT
  Age: 25 Year
  Sex: Female

DRUGS (1)
  1. PREVYMIS [Suspect]
     Active Substance: LETERMOVIR

REACTIONS (3)
  - Intensive care [Not Recovered/Not Resolved]
  - Product preparation issue [Unknown]
  - Incorrect route of product administration [Unknown]
